FAERS Safety Report 6984476-1 (Version None)
Quarter: 2010Q3

REPORT INFORMATION
  Report Type: 
  Country: None (occurrence: None)
  Receive Date: 20100913
  Receipt Date: 20100827
  Transmission Date: 20110219
  Serious: Yes (Hospitalization)
  Sender: FDA-Public Use
  Company Number: 017936

PATIENT
  Sex: Female

DRUGS (1)
  1. CIMZIA [Suspect]
     Indication: CROHN'S DISEASE
     Dosage: (SUBCUTANEOUS)
     Route: 058
     Dates: start: 20100501

REACTIONS (4)
  - ABSCESS [None]
  - APPENDICECTOMY [None]
  - GASTROINTESTINAL INFLAMMATION [None]
  - INTESTINAL PERFORATION [None]
